FAERS Safety Report 14925853 (Version 1)
Quarter: 2018Q2

REPORT INFORMATION
  Report Type: Spontaneous
  Country: US (occurrence: US)
  Receive Date: 20180522
  Receipt Date: 20180522
  Transmission Date: 20180711
  Serious: No
  Sender: FDA-Public Use
  Company Number: US-SIGMAPHARM LABORATORIES, LLC-2018SIG00020

PATIENT
  Sex: Male

DRUGS (3)
  1. PROTRIPTYLINE HYDROCHLORIDE. [Suspect]
     Active Substance: PROTRIPTYLINE HYDROCHLORIDE
     Dosage: 5 MG, UNK
  2. PROTRIPTYLINE HYDROCHLORIDE. [Suspect]
     Active Substance: PROTRIPTYLINE HYDROCHLORIDE
     Dosage: 10 MG, UNK
  3. PROTRIPTYLINE HYDROCHLORIDE (WEST-WARD) [Suspect]
     Active Substance: PROTRIPTYLINE HYDROCHLORIDE
     Dosage: 20 MG, UNK

REACTIONS (5)
  - Feeling abnormal [Not Recovered/Not Resolved]
  - Depression [Not Recovered/Not Resolved]
  - Anxiety [Not Recovered/Not Resolved]
  - Disturbance in attention [Not Recovered/Not Resolved]
  - Product substitution issue [Not Recovered/Not Resolved]
